FAERS Safety Report 25615806 (Version 1)
Quarter: 2025Q3

REPORT INFORMATION
  Report Type: Spontaneous
  Country: US (occurrence: US)
  Receive Date: 20250729
  Receipt Date: 20250729
  Transmission Date: 20251021
  Serious: No
  Sender: Kenvue
  Company Number: US-KENVUE-20250700598

PATIENT
  Sex: Male

DRUGS (7)
  1. IMODIUM [Suspect]
     Active Substance: LOPERAMIDE HYDROCHLORIDE
     Indication: Diarrhoea
     Route: 065
  2. TYVASO [Concomitant]
     Active Substance: TREPROSTINIL
     Indication: Pulmonary arterial hypertension
     Dosage: 108 MICROGRAM (18 BREATHS), FOUR TIME A DAY
     Dates: start: 202312
  3. OFEV [Concomitant]
     Active Substance: NINTEDANIB
     Indication: Idiopathic pulmonary fibrosis
     Route: 065
     Dates: start: 2024
  4. OFEV [Concomitant]
     Active Substance: NINTEDANIB
     Route: 065
     Dates: end: 2024
  5. OFEV [Concomitant]
     Active Substance: NINTEDANIB
     Dosage: ONE CAPSULE, TWICE A DAY, TAKING FOR OVER 3 YEARS
     Route: 065
  6. OFEV [Concomitant]
     Active Substance: NINTEDANIB
     Route: 065
     Dates: start: 2022
  7. TADALAFIL [Concomitant]
     Active Substance: TADALAFIL
     Indication: Product used for unknown indication
     Route: 065

REACTIONS (1)
  - Nausea [Unknown]
